FAERS Safety Report 22094398 (Version 5)
Quarter: 2025Q2

REPORT INFORMATION
  Report Type: Report from Study
  Country: CA (occurrence: CA)
  Receive Date: 20230314
  Receipt Date: 20250609
  Transmission Date: 20250717
  Serious: Yes (Other)
  Sender: TAKEDA
  Company Number: CA-TAKEDA-2022TUS066451

PATIENT
  Sex: Female

DRUGS (15)
  1. VEDOLIZUMAB [Suspect]
     Active Substance: VEDOLIZUMAB
     Indication: Colitis ulcerative
  2. VEDOLIZUMAB [Suspect]
     Active Substance: VEDOLIZUMAB
  3. VEDOLIZUMAB [Suspect]
     Active Substance: VEDOLIZUMAB
  4. VEDOLIZUMAB [Suspect]
     Active Substance: VEDOLIZUMAB
  5. VEDOLIZUMAB [Suspect]
     Active Substance: VEDOLIZUMAB
  6. VEDOLIZUMAB [Suspect]
     Active Substance: VEDOLIZUMAB
  7. ENTOCORT [Concomitant]
     Active Substance: BUDESONIDE
  8. TELMISARTAN [Concomitant]
     Active Substance: TELMISARTAN
  9. AMLODIPINE [Concomitant]
     Active Substance: AMLODIPINE BESYLATE
  10. ESCITALOPRAM [Concomitant]
     Active Substance: ESCITALOPRAM OXALATE
  11. CALCIUM [Concomitant]
     Active Substance: CALCIUM
  12. SIMVASTATIN [Concomitant]
     Active Substance: SIMVASTATIN
  13. LEVOTHYROXINE [Concomitant]
     Active Substance: LEVOTHYROXINE
  14. ASPIRIN [Concomitant]
     Active Substance: ASPIRIN
  15. ALENDRONATE [Concomitant]
     Active Substance: ALENDRONATE SODIUM

REACTIONS (5)
  - Loss of consciousness [Unknown]
  - Fall [Unknown]
  - Diarrhoea [Unknown]
  - Abdominal pain [Unknown]
  - Constipation [Unknown]
